FAERS Safety Report 23923405 (Version 1)
Quarter: 2024Q2

REPORT INFORMATION
  Report Type: Spontaneous
  Country: ES (occurrence: ES)
  Receive Date: 20240531
  Receipt Date: 20240531
  Transmission Date: 20240716
  Serious: Yes (Death, Hospitalization, Other)
  Sender: FDA-Public Use
  Company Number: ES-EPICPHARMA-ES-2024EPCLIT00569

PATIENT
  Age: 92 Year
  Sex: Female
  Weight: 39 kg

DRUGS (1)
  1. GENTAMICIN SULFATE [Suspect]
     Active Substance: GENTAMICIN SULFATE
     Indication: Skin ulcer
     Route: 030

REACTIONS (7)
  - Nephropathy toxic [Fatal]
  - Renal tubular necrosis [Fatal]
  - Acute pulmonary oedema [Fatal]
  - Metabolic acidosis [Fatal]
  - Overdose [Unknown]
  - Product prescribing error [Unknown]
  - Product use in unapproved indication [Unknown]
